FAERS Safety Report 21370453 (Version 1)
Quarter: 2022Q3

REPORT INFORMATION
  Report Type: Report from Study
  Country: CA (occurrence: None)
  Receive Date: 20220923
  Receipt Date: 20220923
  Transmission Date: 20221027
  Serious: Yes (Other)
  Sender: FDA-Public Use
  Company Number: 2022A225552

PATIENT
  Age: 18320 Day
  Sex: Male

DRUGS (2)
  1. FASENRA [Suspect]
     Active Substance: BENRALIZUMAB
     Indication: Asthma
     Dosage: 30.0MG UNKNOWN
     Route: 058
     Dates: start: 20220603
  2. FASENRA [Suspect]
     Active Substance: BENRALIZUMAB
     Indication: Asthma
     Dosage: 30.0MG UNKNOWN
     Route: 058
     Dates: start: 20220701

REACTIONS (5)
  - Asthma [Recovering/Resolving]
  - Diarrhoea [Recovered/Resolved]
  - Drug ineffective [Recovering/Resolving]
  - Abdominal pain [Unknown]
  - Wheezing [Unknown]

NARRATIVE: CASE EVENT DATE: 20220605
